FAERS Safety Report 23338066 (Version 1)
Quarter: 2023Q4

REPORT INFORMATION
  Report Type: Report from Study
  Country: US (occurrence: US)
  Receive Date: 20231226
  Receipt Date: 20231226
  Transmission Date: 20240110
  Serious: Yes (Other)
  Sender: FDA-Public Use
  Company Number: US-002147023-NVSC2023US272365

PATIENT
  Age: 65 Year
  Sex: Male

DRUGS (1)
  1. VIJOICE [Suspect]
     Active Substance: ALPELISIB
     Indication: PIK3CA related overgrowth spectrum
     Dosage: 250 MG, QD
     Route: 048
     Dates: start: 202311

REACTIONS (9)
  - Bone cancer [Unknown]
  - Dysgeusia [Unknown]
  - Diarrhoea [Recovering/Resolving]
  - Fatigue [Unknown]
  - Stomatitis [Unknown]
  - Vomiting [Unknown]
  - Rash [Recovering/Resolving]
  - Pelvic pain [Unknown]
  - Back pain [Unknown]

NARRATIVE: CASE EVENT DATE: 20231101
